FAERS Safety Report 25576331 (Version 1)
Quarter: 2025Q3

REPORT INFORMATION
  Report Type: Spontaneous
  Country: CN (occurrence: CN)
  Receive Date: 20250718
  Receipt Date: 20250718
  Transmission Date: 20251021
  Serious: Yes (Life-Threatening, Hospitalization, Other)
  Sender: Unknown Manufacturer
  Company Number: CN-862174955-ML2025-03542

PATIENT
  Age: 68 Year
  Sex: Female
  Weight: 65 kg

DRUGS (9)
  1. BACLOFEN [Suspect]
     Active Substance: BACLOFEN
     Indication: Pain in extremity
     Dosage: AT 2:00 P.M., THE PATIENT TOOK THE FIRST DOSE (BACLOFEN 10 MG), FOLLOWED BY A SECOND DOSE AT 8:00 P.
     Dates: start: 20231226, end: 20231227
  2. PREGABALIN [Suspect]
     Active Substance: PREGABALIN
     Indication: Pain in extremity
     Dosage: THE PATIENT TOOK THE FIRST DOSE (PREGABALIN 150 MG), FOLLOWED BY A SECOND DOSE AT 8:00 P.M.
     Dates: start: 20231226, end: 20231227
  3. AMLODIPINE BESYLATE [Concomitant]
     Active Substance: AMLODIPINE BESYLATE
     Indication: Product used for unknown indication
  4. METOPROLOL TARTRATE [Concomitant]
     Active Substance: METOPROLOL TARTRATE
     Indication: Product used for unknown indication
  5. ISOSORBIDE DINITRATE [Concomitant]
     Active Substance: ISOSORBIDE DINITRATE
     Indication: Product used for unknown indication
  6. ATORVASTATIN [Concomitant]
     Active Substance: ATORVASTATIN
     Indication: Product used for unknown indication
  7. ASPIRIN [Concomitant]
     Active Substance: ASPIRIN
     Indication: Product used for unknown indication
     Dosage: THE DRUG  HAD BEEN STOPPED BEFORE SURGERY
  8. OMEPRAZOLE [Concomitant]
     Active Substance: OMEPRAZOLE
     Indication: Product used for unknown indication
  9. ALLOPURINOL [Concomitant]
     Active Substance: ALLOPURINOL
     Indication: Product used for unknown indication

REACTIONS (5)
  - Coma [Recovered/Resolved]
  - Depressed level of consciousness [Recovered/Resolved]
  - Pyrexia [Recovered/Resolved]
  - Somnolence [Recovered/Resolved]
  - Drug interaction [Unknown]

NARRATIVE: CASE EVENT DATE: 20231201
